FAERS Safety Report 5542691-8 (Version None)
Quarter: 2007Q4

REPORT INFORMATION
  Report Type: 
  Country: None (occurrence: None)
  Receive Date: 20071206
  Receipt Date: 20071127
  Transmission Date: 20080405
  Serious: Yes (Other)
  Sender: FDA-Public Use
  Company Number: 230697J07USA

PATIENT
  Age: 56 Year
  Sex: Male
  Weight: 104.3273 kg

DRUGS (7)
  1. REBIF [Suspect]
     Indication: MULTIPLE SCLEROSIS
     Dosage: 44 MCG, 3 IN 1 WEEKS, SUBCUTANEOUS
     Route: 058
     Dates: start: 20060517
  2. GABAPENTIN [Concomitant]
  3. PROVIGIL [Concomitant]
  4. CHOLESTEROL MEDICATION (CHOLESTEROL- AND TRIGLYCERIDE REDUCERS) [Concomitant]
  5. ZOLOFT [Concomitant]
  6. OTHER MEDICATIONS (ALL OTHER THERAPEUTIC PRODUCTS) [Concomitant]
  7. STEROIDS [Concomitant]

REACTIONS (1)
  - TYPE 2 DIABETES MELLITUS [None]
